FAERS Safety Report 16949184 (Version 1)
Quarter: 2019Q4

REPORT INFORMATION
  Report Type: Spontaneous
  Country: US (occurrence: US)
  Receive Date: 20191023
  Receipt Date: 20191023
  Transmission Date: 20200122
  Serious: No
  Sender: FDA-Public Use
  Company Number: US-JNJFOC-20191011760

PATIENT
  Sex: Female
  Weight: 18.61 kg

DRUGS (1)
  1. CHILDRENS TYLENOL [Suspect]
     Active Substance: ACETAMINOPHEN
     Indication: ACCIDENTAL EXPOSURE TO PRODUCT
     Dosage: 7.5 ML TOOK ONCE AND THEN 2.5 ML DRANK BY SELF
     Route: 048

REACTIONS (1)
  - Accidental exposure to product [Unknown]
